FAERS Safety Report 7587548-6 (Version None)
Quarter: 2011Q3

REPORT INFORMATION
  Report Type: 
  Country: None (occurrence: None)
  Receive Date: 20110704
  Receipt Date: 20110620
  Transmission Date: 20111222
  Serious: Yes (Other)
  Sender: FDA-Public Use
  Company Number: PHHY2011US54810

PATIENT
  Age: 12 Year
  Sex: Female
  Weight: 85 kg

DRUGS (3)
  1. LAMICTAL [Concomitant]
     Indication: CONVULSION
     Route: 065
  2. RISPERDAL [Concomitant]
     Dosage: 0.5 MG, BID
     Route: 048
  3. AFINITOR [Suspect]
     Indication: TUBEROUS SCLEROSIS
     Dosage: 5 MG, DAILY
     Route: 048
     Dates: start: 20110604

REACTIONS (6)
  - SCREAMING [None]
  - CRYING [None]
  - SLEEP DISORDER [None]
  - OBSESSIVE-COMPULSIVE DISORDER [None]
  - ABNORMAL BEHAVIOUR [None]
  - ANGER [None]
